FAERS Safety Report 4314750-9 (Version None)
Quarter: 2004Q1

REPORT INFORMATION
  Report Type: 
  Country: None (occurrence: None)
  Receive Date: 20040308
  Receipt Date: 20040223
  Transmission Date: 20041129
  Serious: Yes (Death)
  Sender: FDA-Public Use
  Company Number: BE-JNJFOC-20040205230

PATIENT
  Age: 69 Year
  Sex: Male

DRUGS (7)
  1. CISAPRIDE (CISAPRIDE) TABLETS [Suspect]
     Indication: IMPAIRED GASTRIC EMPTYING
     Dosage: 10 MG, 3 IN 1 DAY
     Dates: start: 20030131
  2. ZESTRIL [Concomitant]
  3. ISOTEN (BISOPROLOL FUMARATE) [Concomitant]
  4. CORTISONE (CORTISONE) [Concomitant]
  5. LEVOTHYROXINE SODIUM [Concomitant]
  6. SUSTANON (SUSTANON) [Concomitant]
  7. ZANTAC [Concomitant]

REACTIONS (1)
  - PITUITARY TUMOUR REMOVAL [None]
